FAERS Safety Report 8061872-5 (Version None)
Quarter: 2012Q1

REPORT INFORMATION
  Report Type: 
  Country: None (occurrence: None)
  Receive Date: 20120117
  Receipt Date: 20120105
  Transmission Date: 20120608
  Serious: Yes (Other)
  Sender: FDA-Public Use
  Company Number: KAD201201-000004

PATIENT
  Age: 50 Year
  Sex: Female

DRUGS (1)
  1. RIBAVIRIN [Suspect]

REACTIONS (6)
  - INFLUENZA LIKE ILLNESS [None]
  - DYSGEUSIA [None]
  - ORBITAL OEDEMA [None]
  - SWELLING [None]
  - RASH [None]
  - HEADACHE [None]
